FAERS Safety Report 7992099-0 (Version None)
Quarter: 2011Q4

REPORT INFORMATION
  Report Type: 
  Country: None (occurrence: None)
  Receive Date: 20111219
  Receipt Date: 20101223
  Transmission Date: 20120403
  Serious: No
  Sender: FDA-Public Use
  Company Number: US-ASTRAZENECA-2010SE58603

PATIENT
  Age: 84 Year
  Sex: Female

DRUGS (1)
  1. CRESTOR [Suspect]
     Route: 048

REACTIONS (4)
  - KIDNEY INFECTION [None]
  - ARTHRALGIA [None]
  - PAIN IN EXTREMITY [None]
  - BALANCE DISORDER [None]
